FAERS Safety Report 7617067-X (Version None)
Quarter: 2011Q3

REPORT INFORMATION
  Report Type: 
  Country: None (occurrence: None)
  Receive Date: 20110718
  Receipt Date: 20110705
  Transmission Date: 20111222
  Serious: Yes (Hospitalization, Other)
  Sender: FDA-Public Use
  Company Number: US-ELI_LILLY_AND_COMPANY-US201107001725

PATIENT
  Age: 91 Year
  Sex: Female

DRUGS (1)
  1. FORTEO [Suspect]
     Dosage: UNK, UNKNOWN

REACTIONS (5)
  - FALL [None]
  - ILL-DEFINED DISORDER [None]
  - PELVIC FRACTURE [None]
  - MULTIPLE FRACTURES [None]
  - AMYLOIDOSIS [None]
